FAERS Safety Report 9306134 (Version 2)
Quarter: 2014Q1

REPORT INFORMATION
  Report Type: Spontaneous
  Country: US (occurrence: US)
  Receive Date: 20130523
  Receipt Date: 20140207
  Transmission Date: 20141002
  Serious: No
  Sender: FDA-Public Use
  Company Number: US-PFIZER INC-2013155389

PATIENT
  Age: 62 Year
  Sex: Female

DRUGS (1)
  1. MORPHINE [Suspect]
     Indication: PAIN
     Dosage: UNK (PRN DISPENSE UNIT)
     Route: 042
     Dates: start: 1996, end: 1996

REACTIONS (5)
  - Drug hypersensitivity [Unknown]
  - Insomnia [Recovered/Resolved]
  - Psychomotor hyperactivity [Recovered/Resolved]
  - Disinhibition [Recovered/Resolved]
  - Abnormal behaviour [Recovered/Resolved]
